FAERS Safety Report 7087306-5 (Version None)
Quarter: 2010Q4

REPORT INFORMATION
  Report Type: 
  Country: None (occurrence: None)
  Receive Date: 20101107
  Receipt Date: 20101015
  Transmission Date: 20110411
  Serious: Yes (Hospitalization, Other)
  Sender: FDA-Public Use
  Company Number: PHHY2010US55110

PATIENT
  Sex: Male
  Weight: 65.76 kg

DRUGS (6)
  1. EXJADE [Suspect]
     Indication: BLOOD IRON INCREASED
     Dosage: 1250 MG, QD
     Route: 048
  2. REVLIMID [Suspect]
  3. AUGMENTIN '125' [Suspect]
     Indication: PNEUMONIA
     Route: 048
  4. LEVOXYL [Concomitant]
     Dosage: 1 DF, QD AM
  5. HYDREA [Concomitant]
     Dosage: 1 DF, BID
  6. HYDREA [Concomitant]
     Dosage: 2 DF, BID

REACTIONS (19)
  - ABDOMINAL PAIN UPPER [None]
  - BLOOD PRESSURE DIASTOLIC DECREASED [None]
  - CHEST PAIN [None]
  - CHILLS [None]
  - DEHYDRATION [None]
  - DIARRHOEA [None]
  - DYSPNOEA [None]
  - FREQUENT BOWEL MOVEMENTS [None]
  - GASTROINTESTINAL HAEMORRHAGE [None]
  - LEUKOCYTOSIS [None]
  - NAUSEA [None]
  - PNEUMONIA [None]
  - PNEUMONIA ASPIRATION [None]
  - PYREXIA [None]
  - RALES [None]
  - RECTAL HAEMORRHAGE [None]
  - RENAL FAILURE ACUTE [None]
  - RENAL FAILURE CHRONIC [None]
  - VOMITING [None]
